FAERS Safety Report 7051490-X (Version None)
Quarter: 2010Q4

REPORT INFORMATION
  Report Type: 
  Country: None (occurrence: None)
  Receive Date: 20101019
  Receipt Date: 20101014
  Transmission Date: 20110411
  Serious: Yes (Other)
  Sender: FDA-Public Use
  Company Number: B0679353A

PATIENT
  Age: 90 Year
  Sex: Female

DRUGS (11)
  1. AUGMENTIN '125' [Suspect]
     Indication: URINARY TRACT INFECTION PSEUDOMONAL
     Dosage: 1G TWICE PER DAY
     Route: 048
     Dates: start: 20100727, end: 20100730
  2. AUGMENTIN '125' [Suspect]
     Indication: URINARY TRACT INFECTION PSEUDOMONAL
     Route: 030
     Dates: start: 20100731, end: 20100809
  3. GALANTAMINE HYDROBROMIDE [Concomitant]
     Route: 048
  4. RISPERDAL [Concomitant]
     Route: 048
  5. BROMAZEPAM [Concomitant]
     Route: 048
  6. ZOLPIDEM [Concomitant]
     Route: 048
  7. KARDEGIC [Concomitant]
     Route: 048
  8. CITALOPRAM HYDROBROMIDE [Concomitant]
     Route: 048
  9. AMIODARONE HCL [Concomitant]
     Route: 048
  10. NEXIUM [Concomitant]
     Route: 048
  11. LEVOTHYROXINE SODIUM [Concomitant]
     Route: 048

REACTIONS (11)
  - ALANINE AMINOTRANSFERASE INCREASED [None]
  - ASPARTATE AMINOTRANSFERASE INCREASED [None]
  - ASTHENIA [None]
  - CHOLESTASIS [None]
  - CONDITION AGGRAVATED [None]
  - HEPATIC FUNCTION ABNORMAL [None]
  - INCORRECT ROUTE OF DRUG ADMINISTRATION [None]
  - JAUNDICE [None]
  - MEDICATION ERROR [None]
  - PRURITUS [None]
  - VOMITING [None]
